FAERS Safety Report 13043414 (Version 4)
Quarter: 2017Q1

REPORT INFORMATION
  Report Type: Report from Study
  Country: None (occurrence: US)
  Receive Date: 20161220
  Receipt Date: 20170120
  Transmission Date: 20170428
  Serious: Yes (Other)
  Sender: FDA-Public Use
  Company Number: US-ABBVIE-16P-163-1777719-00

PATIENT
  Sex: Female
  Weight: 192 kg

DRUGS (14)
  1. ENTOCORT [Concomitant]
     Active Substance: BUDESONIDE
     Indication: COLITIS ULCERATIVE
     Route: 054
     Dates: start: 20160113, end: 20160217
  2. ENTOCORT [Concomitant]
     Active Substance: BUDESONIDE
     Route: 054
     Dates: start: 20160218, end: 20160302
  3. AMBIEN [Concomitant]
     Active Substance: ZOLPIDEM TARTRATE
     Indication: INSOMNIA
     Route: 048
     Dates: start: 20150715
  4. 6-MERCAPTOPURINE [Suspect]
     Active Substance: MERCAPTOPURINE
     Indication: COLITIS ULCERATIVE
     Route: 048
     Dates: start: 20160113, end: 20160907
  5. EXCEDRIN [Concomitant]
     Active Substance: ACETAMINOPHEN\ASPIRIN\CAFFEINE
     Indication: HEADACHE
     Route: 048
     Dates: start: 201501
  6. ENTOCORT [Concomitant]
     Active Substance: BUDESONIDE
     Route: 054
     Dates: start: 20160113, end: 20160217
  7. ENTOCORT [Concomitant]
     Active Substance: BUDESONIDE
     Route: 054
     Dates: start: 20160218, end: 20160302
  8. HUMIRA [Suspect]
     Active Substance: ADALIMUMAB
     Indication: COLITIS ULCERATIVE
     Route: 058
     Dates: start: 20141113
  9. ENTOCORT [Concomitant]
     Active Substance: BUDESONIDE
     Indication: COLITIS ULCERATIVE
     Dosage: HIGHEST DOSE 3 GRAMS
     Route: 054
     Dates: start: 20140417, end: 20141015
  10. HUMIRA [Suspect]
     Active Substance: ADALIMUMAB
     Route: 058
     Dates: start: 20150510, end: 20150524
  11. TRINESSA [Concomitant]
     Active Substance: ETHINYL ESTRADIOL\NORGESTIMATE
     Indication: CONTRACEPTION
     Route: 048
     Dates: start: 2013
  12. ENTOCORT [Concomitant]
     Active Substance: BUDESONIDE
     Route: 054
     Dates: start: 20160303
  13. ENTYVIO [Concomitant]
     Active Substance: VEDOLIZUMAB
     Indication: COLITIS ULCERATIVE
     Route: 042
     Dates: start: 20150624
  14. ENTOCORT [Concomitant]
     Active Substance: BUDESONIDE
     Route: 054
     Dates: start: 20160303

REACTIONS (3)
  - Abortion spontaneous [Unknown]
  - Foetal death [Unknown]
  - Exposure during pregnancy [Unknown]

NARRATIVE: CASE EVENT DATE: 20161208
